FAERS Safety Report 19810600 (Version 2)
Quarter: 2021Q4

REPORT INFORMATION
  Report Type: Spontaneous
  Country: US (occurrence: US)
  Receive Date: 20210909
  Receipt Date: 20211021
  Transmission Date: 20220303
  Serious: No
  Sender: FDA-Public Use
  Company Number: 2021A697778

PATIENT
  Sex: Male

DRUGS (1)
  1. BYDUREON [Suspect]
     Active Substance: EXENATIDE
     Indication: Type 2 diabetes mellitus
     Route: 065

REACTIONS (3)
  - Injection site scar [Unknown]
  - Injection site extravasation [Unknown]
  - Needle issue [Unknown]
